FAERS Safety Report 10188963 (Version 1)
Quarter: 2014Q2

REPORT INFORMATION
  Report Type: Spontaneous
  Country: FR (occurrence: None)
  Receive Date: 20140520
  Receipt Date: 20140520
  Transmission Date: 20141212
  Serious: Yes (Hospitalization)
  Sender: FDA-Public Use
  Company Number: AUR-APL-2014-05725

PATIENT
  Age: 93 Year
  Sex: Male

DRUGS (3)
  1. BISOPROLOL (BISOPROLOL) [Suspect]
     Indication: PRODUCT USED FOR UNKNOWN INDICATION
     Route: 048
  2. CORDARONE (AMIODARONE HYDROCHLORIDE)/ORAL/TABLET/200 MILLIGRAMS(S) [Suspect]
     Indication: ARRHYTHMIA
     Route: 048
  3. LASILIX (FUROSEMIDE) [Suspect]
     Indication: PRODUCT USED FOR UNKNOWN INDICATION
     Route: 048

REACTIONS (9)
  - Interstitial lung disease [None]
  - Lung infection [None]
  - Respiratory failure [None]
  - Left ventricular hypertrophy [None]
  - Atrial fibrillation [None]
  - Oxygen saturation decreased [None]
  - Pulmonary oedema [None]
  - No therapeutic response [None]
  - Pulmonary fibrosis [None]
